FAERS Safety Report 24855897 (Version 1)
Quarter: 2025Q1

REPORT INFORMATION
  Report Type: Spontaneous
  Country: US (occurrence: None)
  Receive Date: 20250117
  Receipt Date: 20250117
  Transmission Date: 20250408
  Serious: Yes (Hospitalization)
  Sender: FDA-CTU
  Company Number: None

PATIENT
  Sex: Male
  Weight: 95.7 kg

DRUGS (2)
  1. XELODA [Suspect]
     Active Substance: CAPECITABINE
  2. ELOXATIN [Suspect]
     Active Substance: OXALIPLATIN

REACTIONS (6)
  - Acute pulmonary oedema [None]
  - Pulmonary infarction [None]
  - Pulmonary hypertension [None]
  - Pleural effusion [None]
  - Atelectasis [None]
  - Deep vein thrombosis [None]

NARRATIVE: CASE EVENT DATE: 20241211
